FAERS Safety Report 9275357 (Version 1)
Quarter: 2013Q2

REPORT INFORMATION
  Report Type: Report from Study
  Country: GB (occurrence: GB)
  Receive Date: 20130507
  Receipt Date: 20130507
  Transmission Date: 20140414
  Serious: Yes (Hospitalization)
  Sender: FDA-Public Use
  Company Number: GB-JNJFOC-20130416912

PATIENT
  Age: 44 Year
  Sex: Female
  Weight: 133 kg

DRUGS (9)
  1. STELARA [Suspect]
     Indication: PSORIASIS
     Route: 058
     Dates: start: 20111019, end: 20120715
  2. CO-CODAMOL [Concomitant]
     Dates: start: 20070927
  3. HYDROXOCOBALAMIN [Concomitant]
     Dates: start: 20070927
  4. VENTOLIN [Concomitant]
     Dates: start: 20070927
  5. METFORMIN [Concomitant]
     Dates: start: 20080901
  6. NOVOMIX [Concomitant]
     Dates: start: 20080901
  7. CITALOPRAM [Concomitant]
     Dates: start: 20080424
  8. SIMVASTATIN [Concomitant]
     Dates: start: 20110424
  9. PIOGLITAZONE [Concomitant]
     Dates: start: 20110424

REACTIONS (1)
  - Respiratory tract infection [Recovered/Resolved]
